FAERS Safety Report 17481429 (Version 4)
Quarter: 2021Q1

REPORT INFORMATION
  Report Type: Report from Study
  Country: US (occurrence: US)
  Receive Date: 20200302
  Receipt Date: 20210215
  Transmission Date: 20210419
  Serious: No
  Sender: FDA-Public Use
  Company Number: NVSC2020US056360

PATIENT
  Age: 40 Year
  Sex: Female

DRUGS (1)
  1. COSENTYX [Suspect]
     Active Substance: SECUKINUMAB
     Indication: PSORIASIS
     Dosage: 300 MG, QMO
     Route: 058
     Dates: start: 20170101

REACTIONS (4)
  - Illness [Unknown]
  - Product dose omission issue [Unknown]
  - Rash [Unknown]
  - Skin swelling [Unknown]

NARRATIVE: CASE EVENT DATE: 20200226
